FAERS Safety Report 20374884 (Version 13)
Quarter: 2024Q4

REPORT INFORMATION
  Report Type: Spontaneous
  Country: US (occurrence: US)
  Receive Date: 20220125
  Receipt Date: 20241227
  Transmission Date: 20250115
  Serious: No
  Sender: SANOFI AVENTIS
  Company Number: US-SA-SAC20220120000245

PATIENT
  Age: 37 Year
  Sex: Female
  Weight: 65.771 kg

DRUGS (35)
  1. DUPIXENT [Suspect]
     Active Substance: DUPILUMAB
     Indication: Dermatitis atopic
     Dosage: 300 MG, QOW
     Route: 058
     Dates: start: 20210702
  2. DUPIXENT [Suspect]
     Active Substance: DUPILUMAB
     Indication: Dermatitis allergic
  3. ACAMPROSATE CALCIUM [Concomitant]
     Active Substance: ACAMPROSATE CALCIUM
     Dosage: UNK
     Route: 065
  4. ALBUTEROL SULFATE [Concomitant]
     Active Substance: ALBUTEROL SULFATE
     Dosage: UNK
  5. ALBUTEROL SULFATE [Concomitant]
     Active Substance: ALBUTEROL SULFATE
     Dosage: UNK
     Route: 065
  6. ATOMOXETINE [Concomitant]
     Active Substance: ATOMOXETINE HYDROCHLORIDE
     Dosage: UNK
     Route: 065
  7. BUPROPION [Concomitant]
     Active Substance: BUPROPION
     Dosage: UNK
  8. CHLORDIAZEPOXIDE [Concomitant]
     Active Substance: CHLORDIAZEPOXIDE
     Dosage: UNK
     Route: 065
  9. CLONIDINE [Concomitant]
     Active Substance: CLONIDINE
     Dosage: UNK
     Route: 065
  10. CHLORDIAZEPOX [Concomitant]
     Dosage: UNK
  11. FLUOXETINE [Concomitant]
     Active Substance: FLUOXETINE HYDROCHLORIDE
     Dosage: UNK
     Route: 065
  12. HYDROCHLOROTHIAZIDE [Concomitant]
     Active Substance: HYDROCHLOROTHIAZIDE
     Dosage: UNK
     Route: 065
  13. HYDROXYZINE HYDROCHLORIDE [Concomitant]
     Active Substance: HYDROXYZINE HYDROCHLORIDE
     Dosage: UNK
     Route: 065
  14. IVERMECTIN [Concomitant]
     Active Substance: IVERMECTIN
     Dosage: UNK
     Route: 065
  15. LAMOTRIGINE [Concomitant]
     Active Substance: LAMOTRIGINE
     Dosage: UNK
     Route: 065
  16. LOSARTAN POTASSIUM [Concomitant]
     Active Substance: LOSARTAN POTASSIUM
     Dosage: UNK
     Route: 065
  17. METOPROLOL TARTRATE [Concomitant]
     Active Substance: METOPROLOL TARTRATE
     Dosage: UNK
     Route: 065
  18. NALTREXONE [Concomitant]
     Active Substance: NALTREXONE
     Dosage: UNK
     Route: 065
  19. ONDANSETRON [Concomitant]
     Active Substance: ONDANSETRON
     Dosage: UNK
     Route: 065
  20. PIMECROLIMUS [Concomitant]
     Active Substance: PIMECROLIMUS
     Dosage: UNK
     Route: 065
  21. PREDNISONE [Concomitant]
     Active Substance: PREDNISONE
     Dosage: UNK
     Route: 065
  22. PROMETHAZINE HYDROCHLORIDE [Concomitant]
     Active Substance: PROMETHAZINE HYDROCHLORIDE
     Dosage: UNK
     Route: 065
  23. SCOPOLAMINE [Concomitant]
     Active Substance: SCOPOLAMINE
     Dosage: 1 MG, Q3D
     Route: 065
  24. SPIRONOLACTONE [Concomitant]
     Active Substance: SPIRONOLACTONE
     Dosage: UNK
     Route: 065
  25. SYMBICORT [Concomitant]
     Active Substance: BUDESONIDE\FORMOTEROL FUMARATE DIHYDRATE
     Dosage: SYMBICORT AER 80-4.5
     Route: 065
  26. TRANEXAMIC ACID [Concomitant]
     Active Substance: TRANEXAMIC ACID
     Dosage: UNK
     Route: 065
  27. PROMETHAZINE [Concomitant]
     Active Substance: PROMETHAZINE HYDROCHLORIDE
     Dosage: UNK
     Route: 065
  28. HYDROCORTISONE [Concomitant]
     Active Substance: HYDROCORTISONE
     Dosage: UNK
  29. FLONASE ALLERGY RELIEF [Concomitant]
     Active Substance: FLUTICASONE PROPIONATE
     Dosage: UNK
  30. XYZAL [Concomitant]
     Active Substance: LEVOCETIRIZINE DIHYDROCHLORIDE
     Dosage: UNK
  31. ROSUVASTATIN [Concomitant]
     Active Substance: ROSUVASTATIN
     Dosage: UNK
  32. TRAZODONE [Concomitant]
     Active Substance: TRAZODONE HYDROCHLORIDE
     Dosage: UNK
  33. VALACYCLOVIR HYDROCHLORIDE [Concomitant]
     Active Substance: VALACYCLOVIR HYDROCHLORIDE
     Dosage: UNK
  34. FLUOXETINE HYDROCHLORIDE [Concomitant]
     Active Substance: FLUOXETINE HYDROCHLORIDE
     Dosage: UNK
  35. DILTIAZEM HYDROCHLORIDE [Concomitant]
     Active Substance: DILTIAZEM HYDROCHLORIDE
     Dosage: UNK

REACTIONS (19)
  - Sleep disorder due to a general medical condition [Recovering/Resolving]
  - Mouth ulceration [Not Recovered/Not Resolved]
  - Illness [Unknown]
  - Middle insomnia [Not Recovered/Not Resolved]
  - Skin plaque [Not Recovered/Not Resolved]
  - Discomfort [Not Recovered/Not Resolved]
  - Epicondylitis [Not Recovered/Not Resolved]
  - Impaired quality of life [Unknown]
  - Injection site mass [Unknown]
  - Myalgia [Not Recovered/Not Resolved]
  - Oral herpes [Not Recovered/Not Resolved]
  - Rash [Unknown]
  - Injection site pain [Unknown]
  - Injection site erythema [Unknown]
  - Arthralgia [Not Recovered/Not Resolved]
  - Dermatitis atopic [Recovering/Resolving]
  - Drug ineffective [Recovering/Resolving]
  - Product dose omission in error [Unknown]
  - Therapeutic response decreased [Unknown]

NARRATIVE: CASE EVENT DATE: 20230601
